FAERS Safety Report 5487296-2 (Version None)
Quarter: 2007Q4

REPORT INFORMATION
  Report Type: 
  Country: None (occurrence: None)
  Receive Date: 20071015
  Receipt Date: 20071010
  Transmission Date: 20080405
  Serious: Yes (Other)
  Sender: FDA-Public Use
  Company Number: CHPA2007US10534

PATIENT
  Sex: Male

DRUGS (1)
  1. GAS-X EXTRA STRENGTH SOFTGELS (NCH)(SIMETHICONE) SOFT GELATIN CAPSULE [Suspect]
     Dosage: 250 MG, ONCE/SINGLE, ORAL
     Route: 048
     Dates: start: 20071010

REACTIONS (1)
  - HAEMATEMESIS [None]
